FAERS Safety Report 4741543-0 (Version None)
Quarter: 2005Q3

REPORT INFORMATION
  Report Type: 
  Country: None (occurrence: None)
  Receive Date: 20050808
  Receipt Date: 20050721
  Transmission Date: 20060218
  Serious: Yes (Hospitalization)
  Sender: FDA-Public Use
  Company Number: DE_050716424

PATIENT
  Age: 88 Year
  Sex: Female

DRUGS (10)
  1. FORTEO [Suspect]
     Indication: OSTEOPOROSIS
     Dates: start: 20050501, end: 20050711
  2. MOXONIDIN (MOXONIDINE) [Concomitant]
  3. METOHEXAL (METOPROLOL TARTRATE) [Concomitant]
  4. TORSEMIDE [Concomitant]
  5. SIMVASTATIN [Concomitant]
  6. CORANGIN NITROSPRAY (CORANGIN NITROSPRAY) [Concomitant]
  7. NITRE-PUREN (NITRENDIPINE) [Concomitant]
  8. DYNACIL (FOSINOPRIL SODIUM) [Concomitant]
  9. DIAZEPAM [Concomitant]
  10. ACETYLSALICYLIC ACID SRT [Concomitant]

REACTIONS (9)
  - AGGRESSION [None]
  - ANOREXIA [None]
  - COGNITIVE DISORDER [None]
  - DEPRESSION [None]
  - HYPERTENSION [None]
  - IRRITABILITY [None]
  - MENTAL DISORDER [None]
  - NAUSEA [None]
  - PAIN IN EXTREMITY [None]
